FAERS Safety Report 4279677-X (Version None)
Quarter: 2004Q1

REPORT INFORMATION
  Report Type: 
  Country: None (occurrence: None)
  Receive Date: 20040123
  Receipt Date: 20040107
  Transmission Date: 20041129
  Serious: Yes (Hospitalization)
  Sender: FDA-Public Use
  Company Number: 2004003683

PATIENT
  Age: 69 Year
  Sex: Female

DRUGS (2)
  1. LITHIUM CARBONATE [Suspect]
     Indication: ILL-DEFINED DISORDER
     Dosage: UNKNOWN (DAILY),
  2. ROFECOXIB [Suspect]
     Indication: ILL-DEFINED DISORDER

REACTIONS (5)
  - APHASIA [None]
  - DISORIENTATION [None]
  - DRUG INTERACTION [None]
  - GAIT DISTURBANCE [None]
  - TREMOR [None]
